FAERS Safety Report 15693593 (Version 11)
Quarter: 2023Q1

REPORT INFORMATION
  Report Type: Spontaneous
  Country: DE (occurrence: DE)
  Receive Date: 20181206
  Receipt Date: 20230131
  Transmission Date: 20230417
  Serious: Yes (Life-Threatening, Hospitalization, Disabling, Other)
  Sender: FDA-Public Use
  Company Number: DE-NOVPHSZ-PHHY2018DE159608

PATIENT
  Age: 73 Year
  Sex: Male
  Weight: 75.5 kg

DRUGS (21)
  1. VALSARTAN [Suspect]
     Active Substance: VALSARTAN
     Indication: Hypertension
     Dosage: 160 MILLIGRAM, ONCE A DAY
     Route: 065
  2. VALSARTAN [Suspect]
     Active Substance: VALSARTAN
     Indication: Hypertension
     Dosage: 160 MILLIGRAM, ONCE A DAY
     Route: 065
  3. VALSARTAN [Suspect]
     Active Substance: VALSARTAN
     Indication: Hypertension
     Dosage: 160 MILLIGRAM
     Route: 065
  4. VALSARTAN [Suspect]
     Active Substance: VALSARTAN
     Indication: Hypertension
     Dosage: 160 MILLIGRAM
     Route: 065
     Dates: start: 2011
  5. VALSARTAN [Suspect]
     Active Substance: VALSARTAN
     Dosage: 160 MILLIGRAM
     Route: 065
  6. Bepanthen [Concomitant]
     Indication: Product used for unknown indication
     Dosage: UNK
     Route: 065
  7. IBUPROFEN [Concomitant]
     Active Substance: IBUPROFEN
     Indication: Postoperative care
     Dosage: 600 MILLIGRAM, PRN
     Route: 065
  8. IBUPROFEN [Concomitant]
     Active Substance: IBUPROFEN
     Dosage: 400 MILLIGRAM, 3 TIMES A DAY (1200 MILLIGRAM, ONCE A DAY, TID (1-1-1)
     Route: 065
     Dates: start: 20160415
  9. MCP [Concomitant]
     Active Substance: METOCLOPRAMIDE HYDROCHLORIDE
     Indication: Product used for unknown indication
     Dosage: 3 UNK, ONCE A DAY (UNK UNK, TID (1-1-1))
     Route: 065
  10. METAMIZOLE [Concomitant]
     Active Substance: METAMIZOLE
     Indication: Product used for unknown indication
     Dosage: 30 DROP, FOUR TIMES/DAY (120 DROP, ONCE A DAY)
     Route: 065
  11. Mucofalk [Concomitant]
     Indication: Constipation prophylaxis
     Dosage: UNK
     Route: 065
     Dates: start: 2016
  12. NEBIVOLOL [Concomitant]
     Active Substance: NEBIVOLOL
     Indication: Product used for unknown indication
     Dosage: 2.5 MILLIGRAM, ONCE A DAY (1-0-0)
     Route: 065
  13. NEBIVOLOL [Concomitant]
     Active Substance: NEBIVOLOL
     Dosage: 5 MILLIGRAM, ONCE A DAY (1-0-0)
     Route: 065
     Dates: start: 2016
  14. NOVALGIN (METAMIZOLE SODIUM) [Concomitant]
     Active Substance: METAMIZOLE SODIUM
     Indication: Postoperative care
     Dosage: 40 DROP, (ON DEMAND)
     Route: 065
  15. NOVALGIN (METAMIZOLE SODIUM) [Concomitant]
     Active Substance: METAMIZOLE SODIUM
     Dosage: 40 GTT DROPS 5 TIMES A DAY
     Route: 065
     Dates: start: 20160415
  16. METAMIZOLE [Concomitant]
     Active Substance: METAMIZOLE
     Indication: Product used for unknown indication
     Dosage: 30 GTT DROPS, FOUR TIMES/DAY
     Route: 065
  17. Planum [Concomitant]
     Indication: Product used for unknown indication
     Dosage: UNK
     Route: 065
     Dates: start: 20160421
  18. TEMAZEPAM [Concomitant]
     Active Substance: TEMAZEPAM
     Indication: Product used for unknown indication
     Dosage: UNK UNK, QD (0-0-0-1)
     Route: 065
  19. RANITIDINE HYDROCHLORIDE [Concomitant]
     Active Substance: RANITIDINE HYDROCHLORIDE
     Indication: Product used for unknown indication
     Dosage: 300 MILLIGRAM, ONCE A DAY (1-0-0)
     Route: 065
  20. TEMAZEPAM [Concomitant]
     Active Substance: TEMAZEPAM
     Indication: Product used for unknown indication
     Dosage: UNK
     Route: 065
     Dates: start: 20160421
  21. ALIZAPRIDE HYDROCHLORIDE [Concomitant]
     Active Substance: ALIZAPRIDE HYDROCHLORIDE
     Indication: Product used for unknown indication
     Dosage: 3 UNK, ONCE A DAY (UNK UNK, TID (1-1-1))
     Route: 065

REACTIONS (44)
  - Skin maceration [Unknown]
  - Mental disorder [Not Recovered/Not Resolved]
  - Stevens-Johnson syndrome [Unknown]
  - Dyschezia [Recovered/Resolved]
  - Proctalgia [Recovered/Resolved]
  - Anal squamous cell carcinoma [Recovered/Resolved]
  - Defaecation urgency [Not Recovered/Not Resolved]
  - Squamous cell carcinoma [Unknown]
  - Feeling abnormal [Unknown]
  - C-reactive protein increased [Unknown]
  - Neutrophil count increased [Unknown]
  - Pain [Unknown]
  - Monocyte count increased [Unknown]
  - Anal cancer stage 0 [Unknown]
  - Anal cancer [Unknown]
  - Lymphocyte count decreased [Unknown]
  - Fear of death [Not Recovered/Not Resolved]
  - Impaired quality of life [Unknown]
  - Pyrexia [Unknown]
  - Anal ulcer [Unknown]
  - Oropharyngeal pain [Unknown]
  - Inflammation [Unknown]
  - Radiation skin injury [Unknown]
  - Dermatitis [Unknown]
  - Anal inflammation [Unknown]
  - Gastrointestinal motility disorder [Unknown]
  - Anal infection [Unknown]
  - Abdominal pain upper [Unknown]
  - Anal pruritus [Unknown]
  - Haemorrhoids [Unknown]
  - Anorectal discomfort [Unknown]
  - Haematochezia [Unknown]
  - Glaucoma [Unknown]
  - Anxiety disorder [Not Recovered/Not Resolved]
  - Abdominal discomfort [Not Recovered/Not Resolved]
  - Adjustment disorder with depressed mood [Not Recovered/Not Resolved]
  - Anxiety [Not Recovered/Not Resolved]
  - Depressed mood [Not Recovered/Not Resolved]
  - Sleep disorder [Not Recovered/Not Resolved]
  - Asthenia [Not Recovered/Not Resolved]
  - Fear [Unknown]
  - Obsessive thoughts [Not Recovered/Not Resolved]
  - Loss of libido [Not Recovered/Not Resolved]
  - Wound [Unknown]

NARRATIVE: CASE EVENT DATE: 20140101
